FAERS Safety Report 4662972-X (Version None)
Quarter: 2005Q2

REPORT INFORMATION
  Report Type: 
  Country: None (occurrence: None)
  Receive Date: 20050513
  Receipt Date: 20050428
  Transmission Date: 20051028
  Serious: Yes (Hospitalization)
  Sender: FDA-Public Use
  Company Number: 213925

PATIENT
  Age: 52 Year
  Sex: Male
  Weight: 61 kg

DRUGS (9)
  1. BEVACIZUMAB (BEVACIZUMAB) PWDR + SOLVENT, INFUSION SOLN, 100MG [Suspect]
     Indication: NON-SMALL CELL LUNG CANCER
     Dosage: 15 MG/KG, Q3W, INTRAVENOUS
     Route: 042
     Dates: start: 20050330, end: 20050414
  2. BEVACIZUMAB (BEVACIZUMAB) PWDR + SOLVENT, INFUSION SOLN, 100MG [Suspect]
  3. CISPLATIN [Suspect]
     Indication: NON-SMALL CELL LUNG CANCER
     Dosage: 80 MG/M2, Q3W, INTRAVENOUS
     Route: 042
     Dates: start: 20050330
  4. CISPLATIN [Suspect]
  5. GEMCITABINE (GEMCITABINE HYDROCHLORIDE) [Suspect]
     Indication: NON-SMALL CELL LUNG CANCER
     Dosage: 1250 MG/M2, Q3W, INTRAVENOUS
     Route: 042
     Dates: start: 20050330
  6. GEMCITABINE (GEMCITABINE HYDROCHLORIDE) [Suspect]
  7. MORPHINE SULFATE [Concomitant]
  8. OXYCODONE HCL [Concomitant]
  9. COLOXYL (DOCUSATE SODIUM) [Concomitant]

REACTIONS (5)
  - EPISTAXIS [None]
  - FEBRILE NEUTROPENIA [None]
  - MELAENA [None]
  - PANCYTOPENIA [None]
  - RECTAL HAEMORRHAGE [None]
